FAERS Safety Report 11881944 (Version 2)
Quarter: 2016Q1

REPORT INFORMATION
  Report Type: Spontaneous
  Country: CH (occurrence: CH)
  Receive Date: 20151231
  Receipt Date: 20160108
  Transmission Date: 20160526
  Serious: Yes (Other)
  Sender: FDA-Public Use
  Company Number: CH-PFIZER INC-2015073552

PATIENT
  Age: 23 Year
  Sex: Male

DRUGS (2)
  1. CHAMPIX [Suspect]
     Active Substance: VARENICLINE TARTRATE
     Dosage: 1 MG, 1X/DAY
     Dates: start: 20141013, end: 20141018
  2. CHAMPIX [Suspect]
     Active Substance: VARENICLINE TARTRATE
     Indication: SMOKING CESSATION THERAPY
     Dosage: 0.5 MG, 1X/DAY
     Dates: start: 20141010, end: 20141012

REACTIONS (11)
  - Anxiety [Recovering/Resolving]
  - Malaise [Unknown]
  - Nervous system disorder [Unknown]
  - Mental disorder [Unknown]
  - Schizophrenia [Unknown]
  - Disturbance in attention [Recovering/Resolving]
  - Apathy [Recovering/Resolving]
  - Movement disorder [Unknown]
  - General physical health deterioration [Unknown]
  - Memory impairment [Unknown]
  - Aggression [Recovering/Resolving]

NARRATIVE: CASE EVENT DATE: 20141013
